FAERS Safety Report 5023817-1 (Version None)
Quarter: 2006Q2

REPORT INFORMATION
  Report Type: 
  Country: None (occurrence: None)
  Receive Date: 20060606
  Receipt Date: 20060531
  Transmission Date: 20061013
  Serious: Yes (Death)
  Sender: FDA-Public Use
  Company Number: KII-2001-0000967

PATIENT
  Age: 44 Year
  Sex: Female

DRUGS (6)
  1. OXYCODONE HCL [Suspect]
     Indication: PAIN
     Dosage: 40 MG, SEE TEXT,
  2. ENDODAN (ACETYLSALICYLIC ACID, OXYCODONE HYDROCHLORIDE) [Suspect]
     Indication: HEADACHE
     Dosage: 1 TABLET, Q6H PRN,
  3. PAXIL [Suspect]
     Indication: DRUG USE FOR UNKNOWN INDICATION
     Dosage: 40 MG, SEE TEXT,
  4. TRILEPTAL [Suspect]
     Indication: DRUG USE FOR UNKNOWN INDICATION
     Dosage: 300 MG, SEE TEXT
  5. ALPRAZOLAM [Suspect]
     Indication: DRUG USE FOR UNKNOWN INDICATION
     Dosage: 1 MG, SEE TEXT
  6. VERAPAMIL [Suspect]
     Indication: DRUG USE FOR UNKNOWN INDICATION
     Dosage: 120 MG, TID;

REACTIONS (1)
  - INTENTIONAL OVERDOSE [None]
